FAERS Safety Report 6218813-2 (Version None)
Quarter: 2009Q2

REPORT INFORMATION
  Report Type: 
  Country: None (occurrence: None)
  Receive Date: 20090608
  Receipt Date: 20090525
  Transmission Date: 20091009
  Serious: Yes (Hospitalization)
  Sender: FDA-Public Use
  Company Number: SE-ELI_LILLY_AND_COMPANY-SE200905005927

PATIENT
  Age: 17 Year
  Sex: Female

DRUGS (1)
  1. ZYPREXA [Suspect]
     Indication: PSYCHOTIC DISORDER
     Dosage: 1 D/F, DAILY (1/D)
     Route: 048
     Dates: start: 20030301, end: 20031113

REACTIONS (3)
  - HYPERCHOLESTEROLAEMIA [None]
  - SKIN STRIAE [None]
  - WEIGHT INCREASED [None]
